FAERS Safety Report 18018408 (Version 1)
Quarter: 2020Q3

REPORT INFORMATION
  Report Type: Spontaneous
  Country: JP (occurrence: JP)
  Receive Date: 20200714
  Receipt Date: 20200714
  Transmission Date: 20201103
  Serious: Yes (Hospitalization)
  Sender: FDA-Public Use
  Company Number: JP-TEVA-2020-JP-1799781

PATIENT
  Age: 47 Year
  Sex: Female
  Weight: 48.8 kg

DRUGS (7)
  1. CANDESARTAN. [Concomitant]
     Active Substance: CANDESARTAN
     Indication: CARDIAC FAILURE
     Route: 065
  2. AMIODARONE [Interacting]
     Active Substance: AMIODARONE
     Dosage: 100 MILLIGRAM DAILY;
     Route: 065
  3. CARVEDILOL. [Concomitant]
     Active Substance: CARVEDILOL
     Indication: CARDIAC FAILURE
     Route: 065
  4. AMIODARONE [Interacting]
     Active Substance: AMIODARONE
     Indication: ATRIAL FIBRILLATION
     Dosage: 50 MILLIGRAM DAILY;
     Route: 065
  5. WARFARIN [Suspect]
     Active Substance: WARFARIN
     Indication: ANTICOAGULANT THERAPY
     Dosage: 2?2.25 MG/DAY
     Route: 065
  6. FUROSEMIDE. [Concomitant]
     Active Substance: FUROSEMIDE
     Indication: CARDIAC FAILURE
     Route: 065
  7. SPIRONOLACTONE. [Concomitant]
     Active Substance: SPIRONOLACTONE
     Indication: CARDIAC FAILURE
     Route: 065

REACTIONS (7)
  - Drug interaction [Unknown]
  - Hypotension [Recovering/Resolving]
  - Weight decreased [Unknown]
  - Prothrombin time ratio increased [Unknown]
  - Atrial fibrillation [Recovered/Resolved]
  - Cardiac murmur [Recovering/Resolving]
  - Hyperthyroidism [Recovering/Resolving]
